FAERS Safety Report 12333329 (Version 2)
Quarter: 2016Q4

REPORT INFORMATION
  Report Type: Spontaneous
  Country: US (occurrence: US)
  Receive Date: 20160504
  Receipt Date: 20161013
  Transmission Date: 20170207
  Serious: No
  Sender: FDA-Public Use
  Company Number: US-ROCHE-1714939

PATIENT
  Sex: Female

DRUGS (11)
  1. FOSAMAX [Concomitant]
     Active Substance: ALENDRONATE SODIUM
  2. PRILOSEC [Concomitant]
     Active Substance: OMEPRAZOLE MAGNESIUM
  3. ZYRTEC [Concomitant]
     Active Substance: CETIRIZINE HYDROCHLORIDE
  4. POTASSIUM BROMIDE [Concomitant]
     Active Substance: POTASSIUM BROMIDE
  5. SYMBICORT [Concomitant]
     Active Substance: BUDESONIDE\FORMOTEROL FUMARATE DIHYDRATE
  6. METFORMIN HYDROCHLORIDE. [Concomitant]
     Active Substance: METFORMIN HYDROCHLORIDE
  7. ESBRIET [Suspect]
     Active Substance: PIRFENIDONE
     Indication: IDIOPATHIC PULMONARY FIBROSIS
     Dosage: MAINT
     Route: 048
     Dates: start: 20160301
  8. ALPRAZOLAM. [Concomitant]
     Active Substance: ALPRAZOLAM
  9. ASPIR 81 [Concomitant]
  10. ALBUTEROL SULFATE. [Concomitant]
     Active Substance: ALBUTEROL SULFATE
  11. TEMAZEPAM. [Concomitant]
     Active Substance: TEMAZEPAM

REACTIONS (5)
  - Dizziness [Unknown]
  - Diarrhoea [Unknown]
  - Headache [Unknown]
  - Abdominal discomfort [Unknown]
  - Dyspepsia [Unknown]
